FAERS Safety Report 24395009 (Version 2)
Quarter: 2024Q4

REPORT INFORMATION
  Report Type: Spontaneous
  Country: US (occurrence: US)
  Receive Date: 20241004
  Receipt Date: 20241230
  Transmission Date: 20250115
  Serious: No
  Sender: ALKEM
  Company Number: None

PATIENT
  Age: 35 Year
  Sex: Female
  Weight: 112 kg

DRUGS (16)
  1. LURASIDONE [Interacting]
     Active Substance: LURASIDONE
     Indication: Bipolar II disorder
     Dosage: 40 MILLIGRAM, QD
     Route: 065
  2. LURASIDONE [Interacting]
     Active Substance: LURASIDONE
     Dosage: 80 MILLIGRAM, QD (TITRATED TO OVER 3 MONTHS)
     Route: 065
  3. LURASIDONE [Interacting]
     Active Substance: LURASIDONE
     Dosage: 120 MILLIGRAM, QD
     Route: 065
  4. LURASIDONE [Interacting]
     Active Substance: LURASIDONE
     Dosage: 160 MILLIGRAM, QD
     Route: 065
  5. LURASIDONE [Interacting]
     Active Substance: LURASIDONE
     Dosage: 80 MILLIGRAM, BID (TWICE DAILY)
     Route: 065
  6. LURASIDONE [Interacting]
     Active Substance: LURASIDONE
     Dosage: 120 MILLIGRAM, QD
     Route: 065
  7. LURASIDONE [Interacting]
     Active Substance: LURASIDONE
     Dosage: 80 MILLIGRAM, (EVERY OTHER DAY)
     Route: 065
  8. QUETIAPINE FUMARATE [Suspect]
     Active Substance: QUETIAPINE FUMARATE
     Indication: Bipolar II disorder
     Dosage: 300 MILLIGRAM, (EVERY 1 DAY)  HS (NIGHT)
     Route: 065
  9. QUETIAPINE FUMARATE [Suspect]
     Active Substance: QUETIAPINE FUMARATE
     Dosage: 200 MILLIGRAM, QD (RESTARTED), NIGHTLY
     Route: 065
  10. SEMAGLUTIDE [Interacting]
     Active Substance: SEMAGLUTIDE
     Indication: Weight decreased
     Dosage: 0.25 MILLIGRAM, ONCE WEEKLY
     Route: 058
  11. SEMAGLUTIDE [Interacting]
     Active Substance: SEMAGLUTIDE
     Dosage: 0.5 MILLIGRAM, ONCE WEEKLY
     Route: 058
  12. SEMAGLUTIDE [Interacting]
     Active Substance: SEMAGLUTIDE
     Dosage: 1 MILLIGRAM, ONCE WEEKLY
     Route: 058
  13. SEMAGLUTIDE [Interacting]
     Active Substance: SEMAGLUTIDE
     Dosage: 1.7 MILLIGRAM, ONCE WEEKLY
     Route: 058
  14. SEMAGLUTIDE [Interacting]
     Active Substance: SEMAGLUTIDE
     Dosage: 2.4 MILLIGRAM, ONCE WEEKLY
     Route: 058
  15. LAMOTRIGINE [Concomitant]
     Active Substance: LAMOTRIGINE
     Indication: Bipolar II disorder
     Dosage: 400 MILLIGRAM, QD (EVERY 1 DAY)
     Route: 065
  16. GABAPENTIN [Concomitant]
     Active Substance: GABAPENTIN
     Indication: Bipolar II disorder
     Dosage: 1200 MILLIGRAM, QD (EVERY 1 DAY)
     Route: 065

REACTIONS (4)
  - Drug interaction [Unknown]
  - Eating disorder [Unknown]
  - Nausea [Recovered/Resolved]
  - Weight increased [Recovering/Resolving]
